FAERS Safety Report 17878313 (Version 1)
Quarter: 2020Q2

REPORT INFORMATION
  Report Type: Spontaneous
  Country: CA (occurrence: CA)
  Receive Date: 20200610
  Receipt Date: 20200610
  Transmission Date: 20200714
  Serious: Yes (Hospitalization, Other)
  Sender: FDA-Public Use
  Company Number: CA-AUROBINDO-AUR-APL-2020-027376

PATIENT
  Age: 32 Year
  Sex: Male

DRUGS (2)
  1. OXAZEPAM. [Concomitant]
     Active Substance: OXAZEPAM
     Indication: PRODUCT USED FOR UNKNOWN INDICATION
     Dosage: UNK
     Route: 065
  2. ESCITALOPRAM [Suspect]
     Active Substance: ESCITALOPRAM OXALATE
     Indication: DEPRESSION
     Dosage: 1 DOSAGE FORM, ONCE A DAY
     Route: 048

REACTIONS (8)
  - Endotracheal intubation [Unknown]
  - Tachycardia [Unknown]
  - Clonus [Unknown]
  - Mydriasis [Unknown]
  - Serotonin syndrome [Unknown]
  - Hyperthermia [Unknown]
  - Mechanical ventilation [Unknown]
  - Agitation [Unknown]
